FAERS Safety Report 20815404 (Version 1)
Quarter: 2022Q2

REPORT INFORMATION
  Report Type: Spontaneous
  Country: US (occurrence: US)
  Receive Date: 20220511
  Receipt Date: 20220511
  Transmission Date: 20220721
  Serious: Yes (Hospitalization, Other)
  Sender: FDA-Public Use
  Company Number: US-ORGANON-O2205USA000804

PATIENT
  Sex: Female

DRUGS (1)
  1. FOSAMAX [Suspect]
     Active Substance: ALENDRONATE SODIUM
     Dosage: UNK
     Route: 048

REACTIONS (10)
  - Compression fracture [Unknown]
  - Atrial fibrillation [Unknown]
  - Fall [Unknown]
  - Urinary tract infection [Unknown]
  - Toxicity to various agents [Unknown]
  - Humerus fracture [Unknown]
  - Radius fracture [Recovering/Resolving]
  - Upper limb fracture [Unknown]
  - Fracture malunion [Unknown]
  - Fracture nonunion [Unknown]

NARRATIVE: CASE EVENT DATE: 20170101
